FAERS Safety Report 17240148 (Version 2)
Quarter: 2020Q1

REPORT INFORMATION
  Report Type: Spontaneous
  Country: NL (occurrence: NL)
  Receive Date: 20200107
  Receipt Date: 20200319
  Transmission Date: 20200409
  Serious: Yes (Life-Threatening, Other)
  Sender: FDA-Public Use
  Company Number: NL-AUROBINDO-AUR-APL-2019-094023

PATIENT
  Age: 76 Year
  Sex: Female
  Weight: 58 kg

DRUGS (5)
  1. PAROXETINE. [Suspect]
     Active Substance: PAROXETINE
     Indication: PRODUCT USED FOR UNKNOWN INDICATION
     Dosage: UNK
     Route: 065
     Dates: start: 20180330, end: 2018
  2. DUODOPA [Suspect]
     Active Substance: CARBIDOPA\LEVODOPA
     Dosage: MORNING DOSE: 4ML CONTINUOUS DOSE: 2.4ML EXTRA DOSE: 1.7ML
     Route: 050
  3. MADOPAR [Suspect]
     Active Substance: BENSERAZIDE HYDROCHLORIDE\LEVODOPA
     Indication: PRODUCT USED FOR UNKNOWN INDICATION
     Dosage: 125 MILLIGRAM, EVERY TWO HOURS
     Route: 065
  4. DUODOPA [Suspect]
     Active Substance: CARBIDOPA\LEVODOPA
     Indication: PARKINSON^S DISEASE
     Dosage: MORNING DOSE: 4ML CONTINUOUS DOSE: 2.4ML EXTRA DOSE: 1.7ML
     Route: 050
  5. DUODOPA [Suspect]
     Active Substance: CARBIDOPA\LEVODOPA
     Dosage: MORNING DOSE: 4ML CONTINUOUS DOSE: 2.4ML EXTRA DOSE: 1.7ML
     Route: 050

REACTIONS (34)
  - On and off phenomenon [Not Recovered/Not Resolved]
  - Depression [Recovered/Resolved]
  - Device alarm issue [Unknown]
  - Muscle rigidity [Not Recovered/Not Resolved]
  - Middle insomnia [Recovered/Resolved]
  - Anxiety [Unknown]
  - Therapeutic product effect decreased [Unknown]
  - Mood altered [Not Recovered/Not Resolved]
  - Bradykinesia [Not Recovered/Not Resolved]
  - Initial insomnia [Unknown]
  - Amnesia [Recovered/Resolved]
  - Feeling abnormal [Not Recovered/Not Resolved]
  - Abnormal dreams [Recovered/Resolved]
  - Chorea [Not Recovered/Not Resolved]
  - Tremor [Not Recovered/Not Resolved]
  - Drug ineffective [Recovering/Resolving]
  - Device leakage [Recovered/Resolved]
  - Depressed mood [Recovered/Resolved]
  - Red blood cells urine [Unknown]
  - Device issue [Recovered/Resolved]
  - Listless [Recovered/Resolved]
  - Nocturia [Not Recovered/Not Resolved]
  - Dyskinesia [Not Recovered/Not Resolved]
  - Therapeutic product effect incomplete [Not Recovered/Not Resolved]
  - Device occlusion [Unknown]
  - Weight decreased [Recovered/Resolved]
  - Restlessness [Not Recovered/Not Resolved]
  - Suicidal ideation [Recovered/Resolved]
  - Panic attack [Not Recovered/Not Resolved]
  - Abnormal loss of weight [Recovered/Resolved]
  - Stoma site discharge [Recovered/Resolved]
  - Chills [Not Recovered/Not Resolved]
  - Gait disturbance [Unknown]
  - Medical device discomfort [Not Recovered/Not Resolved]

NARRATIVE: CASE EVENT DATE: 20180330
